FAERS Safety Report 6247252-3 (Version None)
Quarter: 2009Q2

REPORT INFORMATION
  Report Type: 
  Country: None (occurrence: None)
  Receive Date: 20090626
  Receipt Date: 20090616
  Transmission Date: 20091009
  Serious: Yes (Hospitalization, Congenital Anomaly)
  Sender: FDA-Public Use
  Company Number: A0680309A

PATIENT
  Sex: Male
  Weight: 4.8 kg

DRUGS (3)
  1. PAROXETINE HCL [Suspect]
     Indication: ANXIETY
     Dosage: 30MG PER DAY
     Dates: start: 20031101, end: 20060201
  2. PAXIL [Suspect]
     Indication: ANXIETY
     Dosage: 30MG PER DAY
     Dates: start: 20031101, end: 20060201
  3. VITAMIN AND MINERAL PRENATAL SUPPLEMENT W/ FOLIC ACID CAP [Concomitant]

REACTIONS (5)
  - DRUG EXPOSURE DURING PREGNANCY [None]
  - FALLOT'S TETRALOGY [None]
  - HEART VALVE STENOSIS [None]
  - PULMONARY ARTERY STENOSIS [None]
  - PULMONARY HYPOPLASIA [None]
